FAERS Safety Report 25945450 (Version 2)
Quarter: 2025Q4

REPORT INFORMATION
  Report Type: Spontaneous
  Country: CA (occurrence: None)
  Receive Date: 20251021
  Receipt Date: 20251118
  Transmission Date: 20260117
  Serious: Yes (Other)
  Sender: AMERICAN REGENT
  Company Number: CA-AMERICAN REGENT INC-2025003832

PATIENT
  Age: 39 Year
  Sex: Female

DRUGS (2)
  1. VENOFER [Suspect]
     Active Substance: IRON SUCROSE
     Indication: Iron deficiency anaemia
     Dosage: 300 MG IN 250ML NS
     Route: 041
  2. VENOFER [Suspect]
     Active Substance: IRON SUCROSE
     Dosage: 300 MG IN 250ML NS (RATE 96.7 ML/HR)
     Route: 041
     Dates: start: 20250515, end: 20250515

REACTIONS (1)
  - Rash [Recovered/Resolved]

NARRATIVE: CASE EVENT DATE: 20250515
